FAERS Safety Report 4953791-5 (Version None)
Quarter: 2006Q1

REPORT INFORMATION
  Report Type: 
  Country: None (occurrence: None)
  Receive Date: 20060327
  Receipt Date: 20060314
  Transmission Date: 20060701
  Serious: Yes (Hospitalization)
  Sender: FDA-Public Use
  Company Number: ITWYE470714MAR06

PATIENT
  Sex: Male

DRUGS (8)
  1. ENBREL [Suspect]
     Indication: PSORIASIS
     Route: 058
     Dates: start: 20060222, end: 20060304
  2. ENBREL [Suspect]
     Indication: PSORIATIC ARTHROPATHY
  3. ACETYLSALICYLIC ACID SRT [Concomitant]
     Route: 048
  4. ATARAX [Concomitant]
     Route: 048
  5. HUMULIN [Concomitant]
  6. ZESTORETIC [Concomitant]
     Route: 048
  7. ATORVASTATIN CALCIUM [Concomitant]
     Route: 048
  8. NORVASC [Concomitant]
     Route: 048

REACTIONS (2)
  - DERMATITIS EXFOLIATIVE [None]
  - ECZEMA [None]
